FAERS Safety Report 20672143 (Version 1)
Quarter: 2022Q2

REPORT INFORMATION
  Report Type: Spontaneous
  Country: US (occurrence: US)
  Receive Date: 20220405
  Receipt Date: 20220405
  Transmission Date: 20220721
  Serious: No
  Sender: FDA-Public Use
  Company Number: CID000000000023456

PATIENT
  Age: 33 Year
  Sex: Female

DRUGS (2)
  1. BUSPIRONE HYDROCHLORIDE [Suspect]
     Active Substance: BUSPIRONE HYDROCHLORIDE
     Route: 065
  2. VIVITROL [Concomitant]
     Active Substance: NALTREXONE

REACTIONS (1)
  - Drug screen false positive [Unknown]
